FAERS Safety Report 5112529-1 (Version None)
Quarter: 2006Q3

REPORT INFORMATION
  Report Type: 
  Country: None (occurrence: None)
  Receive Date: 20060802
  Receipt Date: 20060401
  Transmission Date: 20061208
  Serious: No
  Sender: FDA-Public Use
  Company Number: 200613518US

PATIENT

DRUGS (1)
  1. KETEK [Suspect]

REACTIONS (1)
  - TOOTH DISCOLOURATION [None]
